FAERS Safety Report 5237477-8 (Version None)
Quarter: 2007Q1

REPORT INFORMATION
  Report Type: 
  Country: None (occurrence: None)
  Receive Date: 20070213
  Receipt Date: 20070201
  Transmission Date: 20070707
  Serious: Yes (Hospitalization)
  Sender: FDA-Public Use
  Company Number: US-ELI_LILLY_AND_COMPANY-US200702000675

PATIENT
  Age: 63 Year
  Sex: Female

DRUGS (2)
  1. HUMALOG [Suspect]
     Indication: DIABETES MELLITUS
     Dosage: UNK, AS NEEDED
  2. ANTIDEPRESSANTS [Concomitant]
     Dosage: UNK, UNKNOWN

REACTIONS (8)
  - BLOOD CREATINE [None]
  - BLOOD CREATINE INCREASED [None]
  - DYSURIA [None]
  - NEPHROLITHIASIS [None]
  - PRURITUS GENERALISED [None]
  - RASH GENERALISED [None]
  - SKIN LESION [None]
  - SLEEP DISORDER [None]
